FAERS Safety Report 13562744 (Version 1)
Quarter: 2017Q2

REPORT INFORMATION
  Report Type: Spontaneous
  Country: RU (occurrence: RU)
  Receive Date: 20170519
  Receipt Date: 20170519
  Transmission Date: 20170830
  Serious: Yes (Other)
  Sender: FDA-Public Use
  Company Number: RU-ASTRAZENECA-2017SE52122

PATIENT
  Age: 40 Year
  Sex: Male

DRUGS (4)
  1. CRESTOR [Suspect]
     Active Substance: ROSUVASTATIN CALCIUM
     Route: 048
     Dates: start: 20170101, end: 201704
  2. XARELTO [Concomitant]
     Active Substance: RIVAROXABAN
  3. BRILINTA [Suspect]
     Active Substance: TICAGRELOR
     Route: 048
     Dates: start: 20170101
  4. ASPIRIN. [Concomitant]
     Active Substance: ASPIRIN

REACTIONS (6)
  - Asthenia [Unknown]
  - White blood cell count abnormal [Unknown]
  - Platelet count abnormal [Unknown]
  - Muscular weakness [Unknown]
  - Iron deficiency anaemia [Unknown]
  - Agranulocytosis [Unknown]

NARRATIVE: CASE EVENT DATE: 20170303
